FAERS Safety Report 4631766-3 (Version None)
Quarter: 2005Q2

REPORT INFORMATION
  Report Type: 
  Country: None (occurrence: None)
  Receive Date: 20050401
  Receipt Date: 20050214
  Transmission Date: 20051028
  Serious: No
  Sender: FDA-Public Use
  Company Number: 2005BI003550

PATIENT
  Age: 38 Year
  Sex: Female
  Weight: 49.8957 kg

DRUGS (1)
  1. NATALIZUMAB [Suspect]
     Indication: MULTIPLE SCLEROSIS
     Dosage: 300 MG;QM;IV
     Route: 042
     Dates: start: 20050118

REACTIONS (8)
  - DEPRESSED MOOD [None]
  - EAR CONGESTION [None]
  - INSOMNIA [None]
  - PYREXIA [None]
  - RESPIRATORY TRACT CONGESTION [None]
  - SINUSITIS [None]
  - THROAT IRRITATION [None]
  - VIRAL INFECTION [None]
